FAERS Safety Report 5970488-3 (Version None)
Quarter: 2008Q4

REPORT INFORMATION
  Report Type: 
  Country: None (occurrence: None)
  Receive Date: 20081126
  Receipt Date: 20081028
  Transmission Date: 20090506
  Serious: No
  Sender: FDA-Public Use
  Company Number: US-ABBOTT-08P-163-0484153-00

PATIENT
  Age: 39 Year
  Sex: Male

DRUGS (1)
  1. SIMCOR [Suspect]
     Indication: HYPERLIPIDAEMIA
     Dosage: 500/20 MILLIGRAMS
     Route: 048
     Dates: start: 20080911, end: 20080921

REACTIONS (2)
  - HAEMATOCHEZIA [None]
  - PRURITUS [None]
